FAERS Safety Report 20960958 (Version 2)
Quarter: 2022Q3

REPORT INFORMATION
  Report Type: Report from Study
  Country: IL (occurrence: IL)
  Receive Date: 20220615
  Receipt Date: 20220701
  Transmission Date: 20221027
  Serious: Yes (Hospitalization)
  Sender: FDA-Public Use
  Company Number: IL-TEVAIL-2022-IL-2045587

PATIENT

DRUGS (4)
  1. DOXORUBICIN [Suspect]
     Active Substance: DOXORUBICIN
     Indication: Thyroid cancer
     Dosage: DAY 1 FOR EVERY 3 WEEKS
     Route: 042
  2. CISPLATIN [Suspect]
     Active Substance: CISPLATIN
     Indication: Thyroid cancer
     Dosage: DAY 1 FOR EVERY 3 WEEKS
     Route: 042
  3. CYCLOPHOSPHAMIDE [Suspect]
     Active Substance: CYCLOPHOSPHAMIDE
     Indication: Thyroid cancer
     Dosage: DAY 1 FOR EVERY 3 WEEKS
     Route: 042
  4. IODINE I-131 [Suspect]
     Active Substance: IODINE I-131
     Indication: Thyroid cancer
     Route: 065

REACTIONS (2)
  - Febrile neutropenia [Recovered/Resolved]
  - Drug ineffective [Unknown]
